FAERS Safety Report 7779122-3 (Version None)
Quarter: 2011Q3

REPORT INFORMATION
  Report Type: 
  Country: None (occurrence: None)
  Receive Date: 20110926
  Receipt Date: 20110916
  Transmission Date: 20111222
  Serious: Yes (Hospitalization, Other)
  Sender: FDA-Public Use
  Company Number: PHHY2011NO82239

PATIENT
  Sex: Male
  Weight: 62.5 kg

DRUGS (4)
  1. ZOLOFT [Concomitant]
     Route: 048
     Dates: start: 20110822
  2. ENALAPRIL COMP SANDOZ [Suspect]
     Indication: HYPERTENSION
     Dosage: 1 DF, QD
     Route: 048
     Dates: end: 20110823
  3. PARALGIN FORTE [Concomitant]
     Indication: BACK PAIN
     Route: 048
  4. ASPIRIN [Concomitant]
     Dosage: 160 MG, QD
     Route: 048

REACTIONS (8)
  - HAEMOGLOBIN DECREASED [None]
  - VERTIGO [None]
  - DIZZINESS [None]
  - SYNCOPE [None]
  - LOSS OF CONSCIOUSNESS [None]
  - HYPONATRAEMIA [None]
  - HIATUS HERNIA [None]
  - VENTRICULAR EXTRASYSTOLES [None]
